FAERS Safety Report 8141331-1 (Version None)
Quarter: 2012Q1

REPORT INFORMATION
  Report Type: 
  Country: None (occurrence: None)
  Receive Date: 20120216
  Receipt Date: 20120206
  Transmission Date: 20120608
  Serious: Yes (Hospitalization)
  Sender: FDA-Public Use
  Company Number: IT-ROCHE-1035624

PATIENT
  Sex: Male

DRUGS (3)
  1. PEGASYS [Suspect]
     Indication: HEPATITIS C
     Route: 058
     Dates: start: 20110902, end: 20111215
  2. COPEGUS [Suspect]
     Indication: HEPATITIS C
     Route: 048
     Dates: start: 20110902, end: 20120130
  3. PEGASYS [Suspect]
     Route: 058
     Dates: start: 20111215

REACTIONS (4)
  - HEAD INJURY [None]
  - ATRIAL FIBRILLATION [None]
  - SYNCOPE [None]
  - ANAEMIA [None]
